FAERS Safety Report 10012532 (Version 2)
Quarter: 2014Q1

REPORT INFORMATION
  Report Type: Spontaneous
  Country: IT (occurrence: IT)
  Receive Date: 20140314
  Receipt Date: 20140321
  Transmission Date: 20141002
  Serious: Yes (Other)
  Sender: FDA-Public Use
  Company Number: IT-VERTEX PHARMACEUTICALS INC-2014-001244

PATIENT
  Age: 49 Year
  Sex: Male
  Weight: 83 kg

DRUGS (3)
  1. INCIVO [Suspect]
     Indication: ANTIVIRAL PROPHYLAXIS
     Dosage: 6 DF, QD
     Route: 048
     Dates: start: 20131015, end: 20140107
  2. COPEGUS [Interacting]
     Indication: ANTIVIRAL PROPHYLAXIS
     Dosage: REDUCED FROM 1200 MG PER DAY TO 600 MG PER DAY
     Dates: start: 20130906, end: 20140224
  3. PEGASYS [Interacting]
     Indication: ANTIVIRAL PROPHYLAXIS
     Route: 058
     Dates: start: 20130906, end: 20140224

REACTIONS (3)
  - Drug interaction [Recovering/Resolving]
  - Pancytopenia [Recovering/Resolving]
  - Off label use [Not Recovered/Not Resolved]
